FAERS Safety Report 8517399-7 (Version None)
Quarter: 2012Q3

REPORT INFORMATION
  Report Type: 
  Country: None (occurrence: None)
  Receive Date: 20120718
  Receipt Date: 20120716
  Transmission Date: 20120928
  Serious: Yes (Death)
  Sender: FDA-Public Use
  Company Number: US-ROCHE-1001586

PATIENT
  Sex: Female
  Weight: 41.8 kg

DRUGS (2)
  1. XELODA [Suspect]
     Indication: COLON CANCER
     Route: 048
     Dates: start: 20110915, end: 20120101
  2. XELODA [Suspect]

REACTIONS (2)
  - DEATH [None]
  - ORAL PAIN [None]
